FAERS Safety Report 20526676 (Version 1)
Quarter: 2022Q1

REPORT INFORMATION
  Report Type: Spontaneous
  Country: CN (occurrence: CN)
  Receive Date: 20220228
  Receipt Date: 20220228
  Transmission Date: 20220423
  Serious: Yes (Other)
  Sender: FDA-Public Use
  Company Number: CN-PFIZER INC-202200268801

PATIENT
  Age: 41 Year
  Sex: Female

DRUGS (2)
  1. XALKORI [Suspect]
     Active Substance: CRIZOTINIB
     Dosage: INTERMITTENTLY FOR THREE OR FOUR MONTHS
     Route: 048
  2. XALKORI [Suspect]
     Active Substance: CRIZOTINIB
     Dosage: TAKEN FOR 20 DAYS CONTINUOUSLY
     Route: 048

REACTIONS (8)
  - Foreign body in throat [Unknown]
  - Oropharyngeal pain [Unknown]
  - Dizziness [Unknown]
  - Dysphagia [Unknown]
  - Laryngeal pain [Unknown]
  - Nasal dryness [Unknown]
  - Off label use [Unknown]
  - Product use issue [Unknown]
